FAERS Safety Report 13705558 (Version 3)
Quarter: 2018Q1

REPORT INFORMATION
  Report Type: Spontaneous
  Country: US (occurrence: US)
  Receive Date: 20170630
  Receipt Date: 20180117
  Transmission Date: 20180508
  Serious: Yes (Death, Hospitalization)
  Sender: FDA-Public Use
  Company Number: US-TAIHO ONCOLOGY INC-EU-2017-00924

PATIENT
  Sex: Female

DRUGS (2)
  1. LONSURF [Suspect]
     Active Substance: TIPIRACIL HYDROCHLORIDE\TRIFLURIDINE
     Indication: RECTAL CANCER
     Dosage: 60 MG AM/45MG PM
     Route: 048
     Dates: start: 20170427, end: 2017
  2. NAPROXEN. [Concomitant]
     Active Substance: NAPROXEN
     Dosage: NI

REACTIONS (1)
  - Disease progression [Fatal]
